FAERS Safety Report 11917067 (Version 1)
Quarter: 2016Q1

REPORT INFORMATION
  Report Type: Spontaneous
  Country: US (occurrence: US)
  Receive Date: 20160114
  Receipt Date: 20160114
  Transmission Date: 20160526
  Serious: No
  Sender: FDA-Public Use
  Company Number: US-SHIRE-US201600304

PATIENT
  Age: 52 Year
  Sex: Male
  Weight: 86.17 kg

DRUGS (5)
  1. CRESTOR [Concomitant]
     Active Substance: ROSUVASTATIN CALCIUM
     Indication: BLOOD CHOLESTEROL ABNORMAL
     Dosage: UNK, 1X/DAY:QD (IN MORNING)
     Route: 048
  2. CITALOPRAM [Concomitant]
     Active Substance: CITALOPRAM HYDROBROMIDE
     Indication: DEPRESSION
     Dosage: UNK, 1X/DAY:QD (IN MORNING)
     Route: 048
  3. VYVANSE [Suspect]
     Active Substance: LISDEXAMFETAMINE DIMESYLATE
     Indication: ATTENTION DEFICIT/HYPERACTIVITY DISORDER
     Dosage: 60 MG, 1X/DAY:QD (IN MORNING)
     Route: 048
     Dates: start: 201511
  4. IMIPRAMINE [Concomitant]
     Active Substance: IMIPRAMINE
     Indication: HEADACHE
     Dosage: 75 MG (3 OF 25 MG), 1X/DAY:QD (AT NIGHT)
     Route: 048
  5. TEMAZEPAM. [Concomitant]
     Active Substance: TEMAZEPAM
     Indication: INSOMNIA
     Dosage: UNK, 1X/DAY:QD (AT NIGHT)
     Route: 048

REACTIONS (2)
  - Tongue ulceration [Not Recovered/Not Resolved]
  - Feeding disorder [Unknown]

NARRATIVE: CASE EVENT DATE: 201511
